FAERS Safety Report 15347384 (Version 1)
Quarter: 2018Q3

REPORT INFORMATION
  Report Type: Spontaneous
  Country: HU (occurrence: HU)
  Receive Date: 20180904
  Receipt Date: 20180904
  Transmission Date: 20181010
  Serious: Yes (Hospitalization)
  Sender: FDA-Public Use
  Company Number: HU-NOVAST LABORATORIES, LTD-HU-2018NOV000304

PATIENT
  Age: 22 Year
  Sex: Female

DRUGS (1)
  1. BUTALBITAL, ACETAMINOPHEN, AND CAFFEINE [Suspect]
     Active Substance: ACETAMINOPHEN\BUTALBITAL\CAFFEINE
     Indication: ABDOMINAL PAIN LOWER
     Dosage: 20 DF, IN 24 HOURS

REACTIONS (7)
  - International normalised ratio increased [Recovering/Resolving]
  - Toxicity to various agents [Unknown]
  - Aspartate aminotransferase increased [Recovering/Resolving]
  - Blood bilirubin increased [Not Recovered/Not Resolved]
  - Thrombocytopenia [Recovering/Resolving]
  - Overdose [Unknown]
  - Alanine aminotransferase increased [Recovering/Resolving]
